FAERS Safety Report 8731664 (Version 3)
Quarter: 2012Q4

REPORT INFORMATION
  Report Type: 
  Country: US (occurrence: US)
  Receive Date: 20120820
  Receipt Date: 20121112
  Transmission Date: 20130627
  Serious: Yes (Other)
  Sender: FDA-Public Use
  Company Number: US-PFIZER INC-2012198472

PATIENT
  Age: 75 Year
  Sex: Female
  Weight: 63.04 kg

DRUGS (8)
  1. REVATIO [Suspect]
     Indication: PULMONARY HYPERTENSION
     Dosage: UNK, 3x/day
     Route: 048
     Dates: start: 201206
  2. WARFARIN [Concomitant]
     Indication: ANTICOAGULANT THERAPY
     Dosage: 5 mg, 1x/day
  3. PAROXETINE [Concomitant]
     Indication: ANXIETY
     Dosage: 10 mg, 1x/day
  4. PANTOPRAZOLE [Concomitant]
     Indication: ACID REFLUX (ESOPHAGEAL)
     Dosage: 40 mg, 2x/day
  5. LEVOTHYROXINE [Concomitant]
     Indication: THYROID DISORDER
     Dosage: 0.125 mg, 1x/day
  6. PRAVASTATIN [Concomitant]
     Indication: HIGH CHOLESTEROL
     Dosage: 40 mg, 1x/day
  7. ZOLPIDEM [Concomitant]
     Indication: SLEEP PROBLEM
     Dosage: 10 mg, 1x/day
  8. LASIX [Concomitant]
     Indication: DIURETIC THERAPY
     Dosage: 20 mg, 1x/day

REACTIONS (2)
  - Tooth abscess [Unknown]
  - Dental caries [Unknown]
